FAERS Safety Report 8171068-4 (Version None)
Quarter: 2012Q1

REPORT INFORMATION
  Report Type: 
  Country: None (occurrence: None)
  Receive Date: 20120228
  Receipt Date: 20120220
  Transmission Date: 20120608
  Serious: Yes (Hospitalization, Other)
  Sender: FDA-Public Use
  Company Number: PHHY2011US22782

PATIENT
  Sex: Male

DRUGS (5)
  1. PRAVASTATIN [Concomitant]
     Indication: DYSLIPIDAEMIA
     Route: 048
  2. EFFEXOR [Concomitant]
  3. BRETHINE [Concomitant]
  4. BACLOFEN [Concomitant]
  5. GILENYA [Suspect]
     Indication: RELAPSING-REMITTING MULTIPLE SCLEROSIS
     Dosage: 0.5 MG, QD
     Route: 048
     Dates: start: 20101215

REACTIONS (31)
  - ACUTE CORONARY SYNDROME [None]
  - CARDIAC ENZYMES INCREASED [None]
  - DIASTOLIC DYSFUNCTION [None]
  - CORONARY ARTERY DISEASE [None]
  - CHEST PAIN [None]
  - DYSPNOEA [None]
  - VENTRICULAR HYPOKINESIA [None]
  - AORTIC DILATATION [None]
  - BLOOD UREA INCREASED [None]
  - BLOOD PRESSURE INCREASED [None]
  - ASPARTATE AMINOTRANSFERASE INCREASED [None]
  - CHEST DISCOMFORT [None]
  - LEFT VENTRICULAR HYPERTROPHY [None]
  - MEAN PLATELET VOLUME INCREASED [None]
  - ALANINE AMINOTRANSFERASE INCREASED [None]
  - MYOCARDIAL INFARCTION [None]
  - CORONARY ARTERY OCCLUSION [None]
  - COLD SWEAT [None]
  - ASTHENIA [None]
  - DIZZINESS [None]
  - ANGINA PECTORIS [None]
  - WHITE BLOOD CELL COUNT DECREASED [None]
  - TROPONIN INCREASED [None]
  - TRICUSPID VALVE INCOMPETENCE [None]
  - HEART RATE INCREASED [None]
  - RED BLOOD CELL COUNT DECREASED [None]
  - MONOCYTE PERCENTAGE INCREASED [None]
  - LOW DENSITY LIPOPROTEIN INCREASED [None]
  - ACTIVATED PARTIAL THROMBOPLASTIN TIME PROLONGED [None]
  - LYMPHOCYTE COUNT DECREASED [None]
  - HYPERHIDROSIS [None]
